FAERS Safety Report 24569719 (Version 1)
Quarter: 2024Q4

REPORT INFORMATION
  Report Type: Other
  Country: US (occurrence: US)
  Receive Date: 20241031
  Receipt Date: 20241031
  Transmission Date: 20250114
  Serious: Yes (Death, Other)
  Sender: AVEVA DRUG DELIVERY SYSTEMS INC.
  Company Number: US-AVEVA-000765

PATIENT
  Age: 49 Year
  Sex: Male

DRUGS (1)
  1. FENTANYL [Suspect]
     Active Substance: FENTANYL
     Indication: Product used for unknown indication
     Dosage: UNK
     Route: 065

REACTIONS (6)
  - Toxicity to various agents [Fatal]
  - Hepatotoxicity [Fatal]
  - Metabolic acidosis [Fatal]
  - Respiratory depression [Fatal]
  - Clonus [Fatal]
  - Tremor [Fatal]
